FAERS Safety Report 18610845 (Version 2)
Quarter: 2020Q4

REPORT INFORMATION
  Report Type: Other
  Country: GB (occurrence: GB)
  Receive Date: 20201214
  Receipt Date: 20201229
  Transmission Date: 20210114
  Serious: Yes (Life-Threatening)
  Sender: FDA-Public Use
  Company Number: GB-STRIDES ARCOLAB LIMITED-2020SP015478

PATIENT
  Age: 1 Year
  Sex: Male
  Weight: 9.8 kg

DRUGS (6)
  1. HYDROCORTISONE. [Suspect]
     Active Substance: HYDROCORTISONE
     Indication: ADRENAL INSUFFICIENCY
     Dosage: 10 MILLIGRAM DISSOLVED IN 10MLS OF WATER, UNK
     Route: 048
     Dates: start: 202009, end: 202011
  2. LEVOTHYROXINE. [Concomitant]
     Active Substance: LEVOTHYROXINE
     Indication: HYPOTHYROIDISM
     Dosage: 37.5 MICROGRAM, UNK
     Route: 065
  3. HYDROCORTISONE. [Suspect]
     Active Substance: HYDROCORTISONE
     Dosage: 1 MILLIGRAM, AT BED TIME
     Route: 048
     Dates: start: 20201119, end: 20201121
  4. HYDROCORTISONE. [Suspect]
     Active Substance: HYDROCORTISONE
     Dosage: 0.5 MILLIGRAM, UNK
     Route: 048
     Dates: start: 20201119, end: 20201121
  5. HYDROCORTISONE. [Suspect]
     Active Substance: HYDROCORTISONE
     Dosage: 1.5 MILLIGRAM AT LUNCHTIME
     Route: 048
     Dates: start: 20201119, end: 20201121
  6. HYDROCORTISONE. [Suspect]
     Active Substance: HYDROCORTISONE
     Indication: SEPTO-OPTIC DYSPLASIA
     Dosage: 1.5 MILLIGRAM IN THE MORNING
     Route: 048
     Dates: start: 20201119, end: 20201121

REACTIONS (6)
  - Drug ineffective [Unknown]
  - Hypoglycaemia [Recovered/Resolved]
  - Decreased activity [Recovered/Resolved]
  - Hyponatraemia [Recovered/Resolved]
  - Adrenocortical insufficiency acute [Recovered/Resolved]
  - Syncope [Recovered/Resolved]

NARRATIVE: CASE EVENT DATE: 20201121
